FAERS Safety Report 6623532-4 (Version None)
Quarter: 2010Q1

REPORT INFORMATION
  Report Type: 
  Country: None (occurrence: None)
  Receive Date: 20100310
  Receipt Date: 20100305
  Transmission Date: 20100710
  Serious: Yes (Other)
  Sender: FDA-Public Use
  Company Number: HQWYE822804AUG04

PATIENT
  Sex: Female
  Weight: 61.29 kg

DRUGS (4)
  1. PREMPRO [Suspect]
  2. CONJUGATED ESTROGENS [Suspect]
  3. MEDROXYPROGESTERONE ACETATE [Suspect]
  4. MEDROXYPROGESTERONE ACETATE [Suspect]

REACTIONS (1)
  - BREAST CANCER METASTATIC [None]
